FAERS Safety Report 19693732 (Version 2)
Quarter: 2021Q4

REPORT INFORMATION
  Report Type: Report from Study
  Country: CA (occurrence: CA)
  Receive Date: 20210812
  Receipt Date: 20211209
  Transmission Date: 20220304
  Serious: Yes (Hospitalization, Other)
  Sender: FDA-Public Use
  Company Number: CA-BRISTOL-MYERS SQUIBB COMPANY-BMS-2021-078580

PATIENT
  Age: 71 Year
  Sex: Male
  Weight: 70.295 kg

DRUGS (8)
  1. ABATACEPT [Suspect]
     Active Substance: ABATACEPT
     Indication: Rheumatoid arthritis
     Dosage: 125 MILLIGRAM, QWK
     Route: 058
     Dates: start: 20210531
  2. SYNTHROID [Concomitant]
     Active Substance: LEVOTHYROXINE SODIUM
     Indication: Product used for unknown indication
     Dosage: UNK
     Route: 065
  3. DEXILANT [Concomitant]
     Active Substance: DEXLANSOPRAZOLE
     Indication: Product used for unknown indication
     Dosage: UNK
     Route: 065
  4. SUPRADOL [KETOROLAC TROMETHAMINE] [Concomitant]
     Indication: Product used for unknown indication
     Dosage: UNK UNK, PRN
     Route: 065
  5. ALVESCO [Concomitant]
     Active Substance: CICLESONIDE
     Indication: Product used for unknown indication
     Dosage: UNK
     Route: 065
  6. ALBUTEROL [Concomitant]
     Active Substance: ALBUTEROL
     Indication: Product used for unknown indication
     Dosage: UNK
     Route: 065
  7. RIVOTRIL [Concomitant]
     Active Substance: CLONAZEPAM
     Indication: Anxiety
     Dosage: UNK
     Route: 065
  8. CHLORMEZANONE [Concomitant]
     Active Substance: CHLORMEZANONE
     Indication: Sleep disorder
     Dosage: UNK
     Route: 065

REACTIONS (5)
  - Pneumonia [Unknown]
  - Sepsis [Unknown]
  - Lung neoplasm malignant [Unknown]
  - Weight decreased [Unknown]
  - Paramnesia [Unknown]
